FAERS Safety Report 21570839 (Version 2)
Quarter: 2022Q4

REPORT INFORMATION
  Report Type: Spontaneous
  Country: JP (occurrence: JP)
  Receive Date: 20221109
  Receipt Date: 20221115
  Transmission Date: 20230112
  Serious: Yes (Death, Other)
  Sender: FDA-Public Use
  Company Number: JP-ASTELLAS-2022US039597

PATIENT
  Age: 65 Year
  Sex: Female

DRUGS (3)
  1. ERLOTINIB [Suspect]
     Active Substance: ERLOTINIB
     Indication: Lung adenocarcinoma
     Route: 065
  2. BEVACIZUMAB [Suspect]
     Active Substance: BEVACIZUMAB
     Indication: Lung adenocarcinoma
     Dosage: 13TH LINE TREATMENT, 15 MG/KG, UNKNOWN FREQ.
     Route: 065
  3. DACOMITINIB [Concomitant]
     Active Substance: DACOMITINIB
     Indication: Lung adenocarcinoma
     Dosage: 14TH LINE REGIMEN, 45 MG, ONCE DAILY
     Route: 065

REACTIONS (2)
  - Metastases to meninges [Fatal]
  - Drug ineffective [Unknown]
